FAERS Safety Report 4947467-8 (Version None)
Quarter: 2006Q1

REPORT INFORMATION
  Report Type: 
  Country: None (occurrence: None)
  Receive Date: 20060313
  Receipt Date: 20060228
  Transmission Date: 20060701
  Serious: Yes (Hospitalization, Other)
  Sender: FDA-Public Use
  Company Number: 2006032991

PATIENT
  Age: 36 Year
  Sex: Female
  Weight: 72.5755 kg

DRUGS (4)
  1. ZOLOFT [Suspect]
     Indication: DEPRESSION
     Dosage: 100 MG (100 MG, 1 IN 1 D), ORAL
     Route: 048
     Dates: start: 20040501
  2. GABAPENTIN [Suspect]
     Indication: NEURALGIA
     Dosage: 1800 MG (600 MG, 3 IN 1 D), ORAL
     Route: 048
     Dates: start: 20050101
  3. LYRICA [Suspect]
     Indication: NEURALGIA
     Dosage: (150 MG, 1 IN D), ORAL
     Route: 048
     Dates: start: 20050901, end: 20060201
  4. MORPHINE [Suspect]
     Indication: BACK PAIN

REACTIONS (14)
  - CAESAREAN SECTION [None]
  - DRUG EXPOSURE DURING PREGNANCY [None]
  - DRUG INEFFECTIVE [None]
  - DRUG WITHDRAWAL SYNDROME [None]
  - FEELING ABNORMAL [None]
  - INSOMNIA [None]
  - NAUSEA [None]
  - NEURALGIA [None]
  - OBSTETRIC PROCEDURE COMPLICATION [None]
  - PAIN [None]
  - PLACENTA PRAEVIA [None]
  - PREMATURE LABOUR [None]
  - TREMOR [None]
  - WEIGHT INCREASED [None]
